FAERS Safety Report 22120644 (Version 1)
Quarter: 2023Q1

REPORT INFORMATION
  Report Type: Report from Study
  Country: US (occurrence: US)
  Receive Date: 20230321
  Receipt Date: 20230321
  Transmission Date: 20230418
  Serious: Yes (Other)
  Sender: FDA-Public Use
  Company Number: US-002147023-NVSC2023US059565

PATIENT
  Sex: Male
  Weight: 78.02 kg

DRUGS (1)
  1. ENTRESTO [Suspect]
     Active Substance: SACUBITRIL\VALSARTAN
     Indication: Cardiac failure congestive
     Dosage: 1 DOSAGE FORM, BID
     Route: 048

REACTIONS (4)
  - Peripheral swelling [Unknown]
  - Dyspnoea [Unknown]
  - Gait disturbance [Unknown]
  - Cough [Unknown]
